FAERS Safety Report 6284931-6 (Version None)
Quarter: 2009Q3

REPORT INFORMATION
  Report Type: 
  Country: None (occurrence: None)
  Receive Date: 20090727
  Receipt Date: 20090716
  Transmission Date: 20100115
  Serious: Yes (Hospitalization, Other)
  Sender: FDA-Public Use
  Company Number: US-ELI_LILLY_AND_COMPANY-US200907003530

PATIENT
  Age: 70 Year
  Sex: Male

DRUGS (5)
  1. ALIMTA [Suspect]
     Indication: NON-SMALL CELL LUNG CANCER
     Dosage: 500 MG/M2, OTHER
     Dates: start: 20090709
  2. FOLIC ACID [Concomitant]
     Dosage: 1 MG, DAILY (1/D)
  3. VITAMIN B-12 [Concomitant]
  4. DEXAMETHASONE [Concomitant]
     Dosage: 4 MG, UNK
  5. VICODIN [Concomitant]
     Indication: PAIN

REACTIONS (3)
  - NECROSIS [None]
  - SKIN EXFOLIATION [None]
  - SKIN REACTION [None]
